FAERS Safety Report 25731853 (Version 1)
Quarter: 2025Q3

REPORT INFORMATION
  Report Type: Spontaneous
  Country: US (occurrence: None)
  Receive Date: 20250826
  Receipt Date: 20250826
  Transmission Date: 20251020
  Serious: Yes (Life-Threatening, Hospitalization, Other)
  Sender: FDA-CTU
  Company Number: None

PATIENT
  Age: 69 Year
  Sex: Male
  Weight: 72.12 kg

DRUGS (3)
  1. QUETIAPINE [Suspect]
     Active Substance: QUETIAPINE
     Indication: Anxiety
     Dosage: FREQUENCY : AT BEDTIME;?
     Dates: start: 202504, end: 20250420
  2. QUETIAPINE [Suspect]
     Active Substance: QUETIAPINE
     Indication: Sleep disorder
  3. QUETIAPINE [Suspect]
     Active Substance: QUETIAPINE
     Indication: Agitation

REACTIONS (25)
  - Dysuria [None]
  - Urinary incontinence [None]
  - Urinary retention [None]
  - Blood pressure decreased [None]
  - General physical condition abnormal [None]
  - Headache [None]
  - Restlessness [None]
  - Faeces discoloured [None]
  - Device dislocation [None]
  - Catheter site haemorrhage [None]
  - Prostatomegaly [None]
  - Urinary tract infection [None]
  - Urinary incontinence [None]
  - Back pain [None]
  - Weight decreased [None]
  - Peripheral artery thrombosis [None]
  - Thrombosis in device [None]
  - Seizure [None]
  - Confusional state [None]
  - Dementia [None]
  - Blood potassium decreased [None]
  - White blood cell count decreased [None]
  - Panic attack [None]
  - Economic problem [None]
  - Product complaint [None]

NARRATIVE: CASE EVENT DATE: 20250409
